FAERS Safety Report 6032728-4 (Version None)
Quarter: 2009Q1

REPORT INFORMATION
  Report Type: 
  Country: None (occurrence: None)
  Receive Date: 20090109
  Receipt Date: 20081230
  Transmission Date: 20090719
  Serious: Yes (Hospitalization)
  Sender: FDA-Public Use
  Company Number: SG-PFIZER INC-2009150426

PATIENT

DRUGS (8)
  1. BLINDED *PLACEBO [Suspect]
     Indication: COLORECTAL CANCER
     Dosage: 37.5 MG, 1X/DAY
     Route: 048
     Dates: start: 20080109
  2. BLINDED SUNITINIB MALATE [Suspect]
     Indication: COLORECTAL CANCER
     Dosage: 37.5 MG, 1X/DAY
     Route: 048
     Dates: start: 20080109
  3. IRINOTECAN HCL [Suspect]
     Indication: COLORECTAL CANCER
     Dosage: FREQUENCY: ONCE, EVERY 2 WEEKS;
     Route: 042
     Dates: start: 20080109
  4. FLUOROURACIL [Suspect]
     Indication: COLORECTAL CANCER
     Dosage: FREQUENCY: ONCE, EVERY 2 WEEKS;
     Route: 042
     Dates: start: 20080109
  5. LEUCOVORIN CALCIUM [Suspect]
     Indication: COLORECTAL CANCER
     Dosage: FREQUENCY: ONCE, EVERY 2 WEEKS;
     Route: 042
     Dates: start: 20080109
  6. METFORMIN [Concomitant]
     Indication: DIABETES MELLITUS
     Dosage: 500 MG, 2X/DAY
     Dates: start: 20040101
  7. TOLBUTAMIDE [Concomitant]
     Indication: DIABETES MELLITUS
     Dosage: 250 MG, 1X/DAY
     Dates: start: 20040101
  8. LOVASTATIN [Concomitant]
     Indication: HYPERLIPIDAEMIA
     Dosage: 20 MG, 1X/DAY
     Dates: start: 20040101

REACTIONS (1)
  - BLOOD CREATININE INCREASED [None]
